FAERS Safety Report 9515207 (Version 1)
Quarter: 2013Q1

REPORT INFORMATION
  Report Type: Spontaneous
  Country: US (occurrence: None)
  Receive Date: 20130305
  Receipt Date: 20130305
  Transmission Date: 20140127
  Serious: Yes (Other)
  Sender: FDA-Public Use
  Company Number: 163-21880-12101816

PATIENT
  Age: 60 Year
  Sex: Female
  Weight: 63.8 kg

DRUGS (11)
  1. REVLIMID [Suspect]
     Indication: PLASMA CELL MYELOMA
     Dosage: 25 MG, 21 IN 28 D, PO
     Route: 048
     Dates: start: 20120721
  2. ASPIRIN (ACETYLSALICYLIC ACID) (UNKNOWN) (ACETYLSALICYLIC ACID) [Concomitant]
  3. ZOFRAN (ONDANSETRON HYDROCHLORIDE) (UNKNOWN) [Concomitant]
  4. OXYCODONE (OXYCODONE) (UNKNOWN) (OXYCODONE) [Concomitant]
  5. ESTRACE (ESTGRADIOL) (UNKNOWN) [Concomitant]
  6. DOCUSATE (DOCUSATE) (UNKNOWN) [Concomitant]
  7. PROGESTERONE (PROGESTERONE) (UNKNOWN) [Concomitant]
  8. VITAMIN D (ERGOCALCIFEROL) (UNKNOWN) [Concomitant]
  9. LEVOXYL (LEVOTHYROXINE SODIUM) (UNKNOWN) [Concomitant]
  10. DEXAMETHASONE (DEXAMETHASONE) (UNKNOWN) [Concomitant]
  11. FLAXSEED OIL (LINSEED OIL) (UNKNOWN) [Concomitant]

REACTIONS (1)
  - Local swelling [None]
